FAERS Safety Report 23632499 (Version 1)
Quarter: 2024Q1

REPORT INFORMATION
  Report Type: Spontaneous
  Country: IL (occurrence: IL)
  Receive Date: 20240314
  Receipt Date: 20240314
  Transmission Date: 20240409
  Serious: Yes (Hospitalization)
  Sender: FDA-Public Use
  Company Number: IL-Merck Healthcare KGaA-2024012816

PATIENT
  Age: 31 Year
  Sex: Male

DRUGS (1)
  1. EUTHYROX [Suspect]
     Active Substance: LEVOTHYROXINE SODIUM
     Indication: Product used for unknown indication
     Dates: start: 20231231

REACTIONS (7)
  - Depression [Unknown]
  - Dry mouth [Unknown]
  - Decreased activity [Unknown]
  - Fatigue [Unknown]
  - Sleep disorder [Unknown]
  - Headache [Unknown]
  - Heart rate increased [Unknown]
